FAERS Safety Report 10257539 (Version 1)
Quarter: 2014Q2

REPORT INFORMATION
  Report Type: Spontaneous
  Country: JP (occurrence: None)
  Receive Date: 20140620
  Receipt Date: 20140620
  Transmission Date: 20141212
  Serious: Yes (Other)
  Sender: FDA-Public Use
  Company Number: SYM-2014-22115

PATIENT
  Age: 68 Year
  Sex: Male

DRUGS (4)
  1. FLUOROURACIL [Suspect]
     Indication: COLORECTAL CANCER
     Dates: start: 201001
  2. IRINOTECAN [Suspect]
     Indication: COLORECTAL CANCER
     Dates: start: 201001
  3. LEUCOVORIN [Suspect]
     Indication: COLORECTAL CANCER
     Dates: start: 201001
  4. BEVACIZUMAB [Suspect]
     Indication: COLORECTAL CANCER
     Dates: start: 201001

REACTIONS (1)
  - Interstitial lung disease [None]
